FAERS Safety Report 8599035-7 (Version None)
Quarter: 2012Q3

REPORT INFORMATION
  Report Type: 
  Country: None (occurrence: None)
  Receive Date: 20120816
  Receipt Date: 20120809
  Transmission Date: 20120928
  Serious: Yes (Other)
  Sender: FDA-Public Use
  Company Number: US-PFIZER INC-2012195714

PATIENT
  Age: 26 Year
  Sex: Female

DRUGS (2)
  1. ZIPRASIDONE HCL [Suspect]
     Indication: PSYCHIATRIC SYMPTOM
     Dosage: UNK
     Route: 065
  2. RISPERIDONE [Suspect]
     Indication: PSYCHIATRIC SYMPTOM
     Dosage: UNK
     Route: 065

REACTIONS (4)
  - ABULIA [None]
  - DELUSION [None]
  - CONDITION AGGRAVATED [None]
  - MUSCLE SPASTICITY [None]
